FAERS Safety Report 10516564 (Version 1)
Quarter: 2014Q4

REPORT INFORMATION
  Report Type: Spontaneous
  Country: US (occurrence: None)
  Receive Date: 20141003
  Receipt Date: 20141003
  Transmission Date: 20150528
  Serious: Yes (Other)
  Sender: FDA-Public Use
  Company Number: 1402592

PATIENT
  Sex: Male

DRUGS (4)
  1. VICTRELIS [Concomitant]
     Active Substance: BOCEPREVIR
  2. ZANAFLEX [Concomitant]
     Active Substance: TIZANIDINE HYDROCHLORIDE
  3. RIBASPHERE [Suspect]
     Active Substance: RIBAVIRIN
     Indication: HEPATITIS C
     Dosage: (600 MG, 2 IN 1 D), ORAL
     Route: 048
     Dates: start: 20131105
  4. PEGASYS [Suspect]
     Active Substance: PEGINTERFERON ALFA-2A
     Indication: HEPATITIS C
     Dosage: 180 UG, 1 IN 1 WK), SUBCUTANEOUS
     Route: 058
     Dates: start: 20131105

REACTIONS (3)
  - Stomatitis [None]
  - Dry mouth [None]
  - Mood altered [None]
